FAERS Safety Report 25045188 (Version 4)
Quarter: 2025Q3

REPORT INFORMATION
  Report Type: Spontaneous
  Country: JP (occurrence: JP)
  Receive Date: 20250306
  Receipt Date: 20250904
  Transmission Date: 20251021
  Serious: Yes (Hospitalization, Other)
  Sender: MERCK SHARP & DOHME LLC
  Company Number: JP-009507513-2260243

PATIENT
  Age: 45 Year
  Sex: Female

DRUGS (2)
  1. KEYTRUDA [Suspect]
     Active Substance: PEMBROLIZUMAB
     Indication: Cervix carcinoma stage III
     Dosage: PATIENT ROA: INTRAVENOUS DRIP
     Route: 041
     Dates: start: 20250212, end: 20250212
  2. CISPLATIN [Suspect]
     Active Substance: CISPLATIN
     Indication: Cervix carcinoma stage III
     Dates: start: 20250204, end: 20250219

REACTIONS (7)
  - Renal impairment [Unknown]
  - Malignant neoplasm progression [Unknown]
  - Haemolytic anaemia [Recovered/Resolved]
  - Haematuria [Unknown]
  - Hepatic function abnormal [Unknown]
  - Hospitalisation [Unknown]
  - Haemoglobin abnormal [Unknown]

NARRATIVE: CASE EVENT DATE: 20250201
